FAERS Safety Report 7822956-7 (Version None)
Quarter: 2011Q4

REPORT INFORMATION
  Report Type: 
  Country: None (occurrence: None)
  Receive Date: 20111018
  Receipt Date: 20110413
  Transmission Date: 20120403
  Serious: No
  Sender: FDA-Public Use
  Company Number: US-ASTRAZENECA-2011SE21091

PATIENT
  Sex: Female
  Weight: 98 kg

DRUGS (13)
  1. SYMBICORT [Suspect]
     Dosage: 160 MG BID
     Route: 055
  2. LORITADINE [Concomitant]
  3. ATROVENT [Concomitant]
  4. DIAZEPAM [Concomitant]
  5. METHACARBANOL [Concomitant]
  6. EPINEPHRINE PEN [Concomitant]
  7. KEPPRA [Concomitant]
  8. DOXYCYCLINE [Concomitant]
  9. LYRICA [Concomitant]
  10. ZOPINEX [Concomitant]
  11. NYSTATIN [Concomitant]
  12. LAMICTAL [Concomitant]
  13. LASIX [Concomitant]

REACTIONS (3)
  - ORAL CANDIDIASIS [None]
  - DYSPNOEA [None]
  - RHINORRHOEA [None]
